FAERS Safety Report 17957897 (Version 1)
Quarter: 2020Q2

REPORT INFORMATION
  Report Type: Spontaneous
  Country: US (occurrence: US)
  Receive Date: 20200629
  Receipt Date: 20200629
  Transmission Date: 20200714
  Serious: No
  Sender: FDA-Public Use
  Company Number: US-JNJFOC-20200635149

PATIENT

DRUGS (1)
  1. WOMENS ROGAINE UNSCENTED [Suspect]
     Active Substance: MINOXIDIL
     Indication: ALOPECIA
     Dosage: DOSE: HALF CAPFUL
     Route: 061

REACTIONS (6)
  - Hair colour changes [Unknown]
  - Application site pruritus [Unknown]
  - Product use in unapproved indication [Unknown]
  - Application site exfoliation [Recovering/Resolving]
  - Wrong technique in product usage process [Unknown]
  - Therapeutic response unexpected [Unknown]
